FAERS Safety Report 11651959 (Version 1)
Quarter: 2015Q4

REPORT INFORMATION
  Report Type: Spontaneous
  Country: US (occurrence: None)
  Receive Date: 20151021
  Receipt Date: 20151021
  Transmission Date: 20160304
  Serious: No
  Sender: FDA-Public Use
  Company Number: None

PATIENT

DRUGS (1)
  1. VALIUM [Suspect]
     Active Substance: DIAZEPAM

REACTIONS (7)
  - Breast mass [None]
  - Visual impairment [None]
  - Malaise [None]
  - Multiple allergies [None]
  - Arthralgia [None]
  - Amnesia [None]
  - Musculoskeletal pain [None]
